FAERS Safety Report 25492244 (Version 1)
Quarter: 2025Q2

REPORT INFORMATION
  Report Type: Spontaneous
  Country: CN (occurrence: CN)
  Receive Date: 20250630
  Receipt Date: 20250630
  Transmission Date: 20250717
  Serious: Yes (Hospitalization)
  Sender: ROCHE
  Company Number: CN-ROCHE-10000324694

PATIENT
  Age: 66 Year
  Sex: Female

DRUGS (14)
  1. BEVACIZUMAB [Suspect]
     Active Substance: BEVACIZUMAB
     Indication: Ovarian cancer
     Route: 042
     Dates: start: 20250315, end: 20250602
  2. CADONILIMAB [Suspect]
     Active Substance: CADONILIMAB
     Indication: Ovarian cancer
     Route: 042
     Dates: start: 20250315, end: 20250602
  3. DISITAMAB VEDOTIN [Suspect]
     Active Substance: DISITAMAB VEDOTIN
     Indication: Ovarian cancer
     Route: 042
     Dates: start: 20250315, end: 20250602
  4. DIPHENHYDRAMINE [Concomitant]
     Active Substance: DIPHENHYDRAMINE
     Route: 030
  5. BETAMETHASONE [Concomitant]
     Active Substance: BETAMETHASONE
     Route: 030
  6. LORATADINE [Concomitant]
     Active Substance: LORATADINE
     Route: 048
  7. PIPERACILLIN AND TAZOBACTAM [Concomitant]
     Active Substance: PIPERACILLIN SODIUM\TAZOBACTAM SODIUM
     Route: 042
  8. IBUPROFEN [Concomitant]
     Active Substance: IBUPROFEN
  9. PREDNISONE [Concomitant]
     Active Substance: PREDNISONE
     Route: 065
     Dates: start: 20250611
  10. PREDNISONE [Concomitant]
     Active Substance: PREDNISONE
     Dosage: 09-JUN-2025 TO 10-JUN-2025
     Route: 065
  11. PREDNISONE [Concomitant]
     Active Substance: PREDNISONE
     Dosage: 12-JUN-2025 TO 14-JUN-2025
     Route: 065
  12. BARICITINIB [Concomitant]
     Active Substance: BARICITINIB
     Route: 048
  13. CALCIUM GLUCONATE [Concomitant]
     Active Substance: CALCIUM GLUCONATE
  14. MOMETASONE [Concomitant]
     Active Substance: MOMETASONE

REACTIONS (1)
  - Drug eruption [Recovering/Resolving]

NARRATIVE: CASE EVENT DATE: 20250606
